FAERS Safety Report 11794820 (Version 1)
Quarter: 2015Q4

REPORT INFORMATION
  Report Type: Spontaneous
  Country: DE (occurrence: DE)
  Receive Date: 20151202
  Receipt Date: 20151202
  Transmission Date: 20160305
  Serious: Yes (Hospitalization, Other)
  Sender: FDA-Public Use
  Company Number: DE-TEVA-613172GER

PATIENT
  Age: 63 Year
  Sex: Female

DRUGS (9)
  1. DIAZEPAM. [Suspect]
     Active Substance: DIAZEPAM
     Dosage: 10 MILLIGRAM DAILY;
     Route: 048
     Dates: start: 20150521
  2. ORFIRIL [Suspect]
     Active Substance: VALPROIC ACID
     Route: 048
     Dates: start: 20150518, end: 20150519
  3. DIAZEPAM. [Suspect]
     Active Substance: DIAZEPAM
     Dosage: 50 MILLIGRAM DAILY;
     Route: 048
     Dates: start: 20150520
  4. DIAZEPAM. [Suspect]
     Active Substance: DIAZEPAM
     Dosage: 40 MILLIGRAM DAILY;
     Route: 048
     Dates: start: 20150517, end: 20150518
  5. DIAZEPAM. [Suspect]
     Active Substance: DIAZEPAM
     Dosage: 15 MILLIGRAM DAILY;
     Route: 048
     Dates: start: 20150519
  6. ORFIRIL [Suspect]
     Active Substance: VALPROIC ACID
     Route: 048
     Dates: start: 20150520, end: 20150526
  7. DIAZEPAM. [Suspect]
     Active Substance: DIAZEPAM
     Dosage: 5 MILLIGRAM DAILY;
     Route: 048
     Dates: start: 20150522, end: 20150524
  8. ZYPREXA [Suspect]
     Active Substance: OLANZAPINE
     Route: 048
     Dates: start: 20150519, end: 20150526
  9. ZYPREXA [Suspect]
     Active Substance: OLANZAPINE
     Route: 048
     Dates: start: 20150518, end: 20150518

REACTIONS (1)
  - Altered state of consciousness [Recovered/Resolved]

NARRATIVE: CASE EVENT DATE: 20150526
